FAERS Safety Report 25853982 (Version 4)
Quarter: 2025Q4

REPORT INFORMATION
  Report Type: Report from Study
  Country: US (occurrence: US)
  Receive Date: 20250926
  Receipt Date: 20251013
  Transmission Date: 20260118
  Serious: Yes (Hospitalization, Other)
  Sender: ABBVIE
  Company Number: US-ABBVIE-6475891

PATIENT
  Age: 51 Year
  Sex: Male
  Weight: 77.11 kg

DRUGS (4)
  1. HUMIRA [Suspect]
     Active Substance: ADALIMUMAB
     Indication: Ankylosing spondylitis
     Dosage: FORM STRENGTH: 40 MILLIGRAM?DOSE FORM: SOLUTION FOR INJECTION IN PRE-FILLED PEN?2 PENS
     Route: 058
     Dates: start: 202203, end: 2024
  2. HUMIRA [Suspect]
     Active Substance: ADALIMUMAB
     Dosage: FORM STRENGTH: 40 MILLIGRAM?DOSE FORM: SOLUTION FOR INJECTION IN PRE-FILLED PEN
     Route: 058
     Dates: start: 2025
  3. EPIPEN [Concomitant]
     Active Substance: EPINEPHRINE
     Indication: Multiple allergies
  4. ZYRTEC [Concomitant]
     Active Substance: CETIRIZINE HYDROCHLORIDE
     Indication: Product used for unknown indication

REACTIONS (15)
  - Tendon injury [Recovering/Resolving]
  - Osteoarthritis [Recovered/Resolved]
  - Drug ineffective [Not Recovered/Not Resolved]
  - Tendonitis [Recovering/Resolving]
  - Limb injury [Unknown]
  - Iritis [Not Recovered/Not Resolved]
  - Joint injury [Not Recovered/Not Resolved]
  - Nerve block [Not Recovered/Not Resolved]
  - Synovial cyst [Not Recovered/Not Resolved]
  - Fluid retention [Not Recovered/Not Resolved]
  - Hypoaesthesia [Unknown]
  - Cardiac disorder [Unknown]
  - Fatigue [Unknown]
  - Depression [Unknown]
  - Headache [Unknown]

NARRATIVE: CASE EVENT DATE: 20220101
